FAERS Safety Report 18189349 (Version 1)
Quarter: 2020Q3

REPORT INFORMATION
  Report Type: Spontaneous
  Country: US (occurrence: US)
  Receive Date: 20200824
  Receipt Date: 20200824
  Transmission Date: 20201103
  Serious: No
  Sender: FDA-Public Use
  Company Number: US-PAIPHARMA-2020-US-002960

PATIENT
  Age: 64 Year
  Sex: Female

DRUGS (3)
  1. LACTULOSE SOLUTION USP, AF [Suspect]
     Active Substance: LACTULOSE
     Indication: CONSTIPATION
     Dosage: 30ML BY 3X DAILY
     Route: 048
     Dates: start: 20191231
  2. HYDROMORPHONE [Concomitant]
     Active Substance: HYDROMORPHONE
  3. UNSPECIFIED MEDICATIONS [Concomitant]
     Active Substance: UNSPECIFIED INGREDIENT

REACTIONS (3)
  - Intentional product misuse [Not Recovered/Not Resolved]
  - Therapeutic product effect decreased [Not Recovered/Not Resolved]
  - Product use issue [Not Recovered/Not Resolved]

NARRATIVE: CASE EVENT DATE: 20191231
